FAERS Safety Report 9520962 (Version 3)
Quarter: 2013Q4

REPORT INFORMATION
  Report Type: Spontaneous
  Country: US (occurrence: US)
  Receive Date: 20130913
  Receipt Date: 20131001
  Transmission Date: 20140711
  Serious: No
  Sender: FDA-Public Use
  Company Number: US-PFIZER INC-2013263038

PATIENT
  Age: 91 Year
  Sex: Female
  Weight: 64.4 kg

DRUGS (4)
  1. METOPROLOL TARTRATE [Suspect]
     Dosage: UNK
  2. NORVASC [Suspect]
     Dosage: 5 MG, 1X/DAY
  3. NORVASC [Suspect]
     Dosage: 2.5 MG, 1X/DAY
     Dates: start: 2012, end: 201309
  4. TOPROL [Suspect]
     Indication: HYPERTENSION
     Dosage: UNK

REACTIONS (4)
  - Rash [Recovered/Resolved]
  - Drug hypersensitivity [Unknown]
  - Flushing [Unknown]
  - Dermatitis contact [Unknown]
